FAERS Safety Report 8273859-8 (Version None)
Quarter: 2012Q2

REPORT INFORMATION
  Report Type: 
  Country: None (occurrence: None)
  Receive Date: 20120409
  Receipt Date: 20120405
  Transmission Date: 20120825
  Serious: Yes (Death)
  Sender: FDA-Public Use
  Company Number: ADR-2011-10916

PATIENT
  Age: 58 Year
  Sex: Male

DRUGS (3)
  1. BUPIVACAINE HCL [Concomitant]
  2. LIORESAL [Suspect]
     Indication: MUSCLE SPASTICITY
     Dosage: 179.82 MCG, DAILY, INTR
     Route: 037
  3. DILAUDID [Concomitant]

REACTIONS (1)
  - RECTAL CANCER METASTATIC [None]
